FAERS Safety Report 20611953 (Version 2)
Quarter: 2022Q2

REPORT INFORMATION
  Report Type: Spontaneous
  Country: NZ (occurrence: NZ)
  Receive Date: 20220318
  Receipt Date: 20220509
  Transmission Date: 20220721
  Serious: Yes (Death, Hospitalization)
  Sender: FDA-Public Use
  Company Number: NZ-MYLANLABS-2022M1020417

PATIENT
  Sex: Male

DRUGS (1)
  1. CLOZARIL [Suspect]
     Active Substance: CLOZAPINE
     Indication: Schizophrenia
     Dosage: 225 MILLIGRAM, QD (225MG DAILY)
     Route: 048
     Dates: start: 19940531

REACTIONS (2)
  - COVID-19 [Fatal]
  - Aspiration [Fatal]
